FAERS Safety Report 7511175-X (Version None)
Quarter: 2011Q2

REPORT INFORMATION
  Report Type: 
  Country: None (occurrence: None)
  Receive Date: 20110531
  Receipt Date: 20090125
  Transmission Date: 20111010
  Serious: Yes (Death, Hospitalization, Other)
  Sender: FDA-Public Use
  Company Number: US-BAYER-200911452NA

PATIENT
  Age: 76 Year
  Sex: Male
  Weight: 79 kg

DRUGS (19)
  1. TRASYLOL [Suspect]
     Indication: CORONARY ARTERY BYPASS
     Dosage: UNK
     Route: 042
     Dates: start: 20010331, end: 20010331
  2. METOPROLOL TARTRATE [Concomitant]
     Dosage: 50 MG, BID, LONG TERM
     Route: 048
  3. BENADRYL [Concomitant]
     Dosage: 50 MG, UNK
     Dates: start: 20010330
  4. INTEGRILIN [Concomitant]
     Dosage: UNK
     Dates: start: 20010330
  5. ATROVENT [Concomitant]
     Dosage: INHALED, TID
  6. GEMFIBROZIL [Concomitant]
     Dosage: 600 MG, LONG TERM
     Route: 048
  7. PERSANTINE [Concomitant]
     Dosage: 75 MG, BID
     Route: 048
  8. IMDUR [Concomitant]
     Dosage: 30 MG, QD
     Route: 048
     Dates: start: 20010329
  9. MUCOMYST [Concomitant]
     Indication: PREOPERATIVE CARE
     Dosage: 600 MG, QD
     Route: 048
     Dates: start: 20010329, end: 20010330
  10. NITROGLYCERIN [Concomitant]
     Dosage: 1.5 INCHES EVERY 6 HOURS
     Route: 061
     Dates: start: 20010330
  11. PLENDIL [Concomitant]
     Dosage: 10 MG, QD
     Route: 048
  12. ACETYLSALICYLIC ACID SRT [Concomitant]
     Dosage: 325 MG, QD, LONG TERM
     Route: 048
  13. NORTRIPTYLINE HCL [Concomitant]
     Dosage: AT BEDTIME, LONG TERM
     Route: 048
  14. ACCUPRIL [Concomitant]
     Dosage: 10 MG, BID
     Route: 048
  15. MAXAIR [Concomitant]
     Dosage: UNK UNK, TID
  16. VALIUM [Concomitant]
     Dosage: 10 MG, UNK
     Dates: start: 20010330
  17. LASIX [Concomitant]
     Dosage: 20 MG, PRN
     Route: 048
  18. SODIUM BICARBONATE [Concomitant]
     Dosage: 650 MG, TID
     Route: 048
     Dates: start: 20010329
  19. SYNTHROID [Concomitant]
     Dosage: 0.1 MG, QD, LONG TERM
     Route: 048

REACTIONS (13)
  - MULTI-ORGAN FAILURE [None]
  - RENAL INJURY [None]
  - ANXIETY [None]
  - EMOTIONAL DISTRESS [None]
  - DEATH [None]
  - RENAL IMPAIRMENT [None]
  - PAIN [None]
  - ANHEDONIA [None]
  - INJURY [None]
  - RENAL FAILURE [None]
  - STRESS [None]
  - UNEVALUABLE EVENT [None]
  - FEAR [None]
